FAERS Safety Report 17392744 (Version 1)
Quarter: 2020Q1

REPORT INFORMATION
  Report Type: Spontaneous
  Country: US (occurrence: US)
  Receive Date: 20200207
  Receipt Date: 20200207
  Transmission Date: 20200409
  Serious: Yes (Hospitalization, Other)
  Sender: FDA-Public Use
  Company Number: US-NOVOPROD-710378

PATIENT
  Age: 57 Year
  Sex: Female

DRUGS (1)
  1. VICTOZA [Suspect]
     Active Substance: LIRAGLUTIDE
     Indication: PRODUCT USED FOR UNKNOWN INDICATION
     Dosage: UNK
     Route: 058
     Dates: end: 2013

REACTIONS (3)
  - Malaise [Not Recovered/Not Resolved]
  - Intestinal resection [Recovered/Resolved with Sequelae]
  - Gastrointestinal procedural complication [Recovered/Resolved]

NARRATIVE: CASE EVENT DATE: 2013
